FAERS Safety Report 5153907-4 (Version None)
Quarter: 2006Q4

REPORT INFORMATION
  Report Type: 
  Country: None (occurrence: None)
  Receive Date: 20061120
  Receipt Date: 20061102
  Transmission Date: 20070319
  Serious: Yes (Death)
  Sender: FDA-Public Use
  Company Number: CA-BAYER-200615512GDS

PATIENT
  Age: 44 Year
  Sex: Male
  Weight: 120 kg

DRUGS (1)
  1. NEXAVAR [Suspect]
     Indication: RENAL CELL CARCINOMA STAGE UNSPECIFIED
     Route: 048
     Dates: start: 20060927, end: 20061030

REACTIONS (2)
  - MALIGNANT NEOPLASM PROGRESSION [None]
  - RENAL CELL CARCINOMA STAGE UNSPECIFIED [None]
